FAERS Safety Report 11074756 (Version 5)
Quarter: 2015Q3

REPORT INFORMATION
  Report Type: Spontaneous
  Country: US (occurrence: US)
  Receive Date: 20150429
  Receipt Date: 20150807
  Transmission Date: 20151125
  Serious: Yes (Hospitalization, Other)
  Sender: FDA-Public Use
  Company Number: US-BAYER-2015-180042

PATIENT
  Age: 30 Year
  Sex: Female
  Weight: 78 kg

DRUGS (5)
  1. MIRENA [Suspect]
     Active Substance: LEVONORGESTREL
     Indication: CONTRACEPTION
     Dosage: 20 MCG/24HR, CONT
     Route: 015
     Dates: start: 20100620, end: 20131125
  2. IMITREX [Concomitant]
     Active Substance: SUMATRIPTAN\SUMATRIPTAN SUCCINATE
     Indication: MIGRAINE
  3. FLONASE [Concomitant]
     Active Substance: FLUTICASONE PROPIONATE
     Indication: SEASONAL ALLERGY
     Dosage: UNK
     Route: 045
     Dates: start: 2007, end: 2015
  4. PRILOSEC [Concomitant]
     Active Substance: OMEPRAZOLE MAGNESIUM
  5. CELEXA [Concomitant]
     Active Substance: CITALOPRAM HYDROBROMIDE
     Indication: DEPRESSION
     Dosage: UNK
     Route: 048
     Dates: start: 2013, end: 2015

REACTIONS (18)
  - Depression [None]
  - Anxiety [None]
  - Genital haemorrhage [None]
  - Device dislocation [None]
  - Ectopic pregnancy with contraceptive device [None]
  - Depressed mood [None]
  - Abdominal discomfort [None]
  - Peritoneal adhesions [None]
  - Post procedural discomfort [None]
  - Injury [None]
  - Emotional distress [None]
  - Abdominal pain [None]
  - Procedural pain [None]
  - Stress [None]
  - Suicidal ideation [None]
  - Drug ineffective [None]
  - Pelvic pain [None]
  - Device issue [None]

NARRATIVE: CASE EVENT DATE: 2013
